FAERS Safety Report 7532489-3 (Version None)
Quarter: 2011Q2

REPORT INFORMATION
  Report Type: 
  Country: None (occurrence: None)
  Receive Date: 20110608
  Receipt Date: 20110526
  Transmission Date: 20111010
  Serious: Yes (Hospitalization, Other)
  Sender: FDA-Public Use
  Company Number: PHHY2009CA21059

PATIENT
  Sex: Female

DRUGS (4)
  1. SANDOSTATIN LAR [Suspect]
     Indication: CARCINOID TUMOUR
     Dosage: 30 MG, QMO
     Route: 030
     Dates: start: 20080401
  2. DILAUDID [Concomitant]
     Indication: PAIN
  3. SANDOSTATIN LAR [Suspect]
     Dosage: 30 MG, EVERY 4 WEEKS
     Route: 030
  4. TRAMADOL HYDROCHLORIDE/ACETAMINOPHEN [Concomitant]

REACTIONS (18)
  - NEOPLASM MALIGNANT [None]
  - NAUSEA [None]
  - BLOOD LACTIC ACID INCREASED [None]
  - DEHYDRATION [None]
  - EMOTIONAL DISTRESS [None]
  - FLUSHING [None]
  - LIVER DISORDER [None]
  - VOMITING [None]
  - DISORIENTATION [None]
  - PYREXIA [None]
  - PANIC ATTACK [None]
  - FEELING HOT [None]
  - CHILLS [None]
  - FLATULENCE [None]
  - DYSPNOEA [None]
  - DIARRHOEA [None]
  - CONFUSIONAL STATE [None]
  - RESTLESSNESS [None]
